FAERS Safety Report 9122991 (Version 2)
Quarter: 2013Q2

REPORT INFORMATION
  Report Type: Spontaneous
  Country: IE (occurrence: IE)
  Receive Date: 20130115
  Receipt Date: 20130402
  Transmission Date: 20140414
  Serious: Yes (Hospitalization)
  Sender: FDA-Public Use
  Company Number: IE-ASTRAZENECA-2013SE02523

PATIENT
  Age: 9 Month
  Sex: Male

DRUGS (2)
  1. SYNAGIS [Suspect]
     Indication: PREMATURE BABY
     Route: 030
     Dates: start: 20121031, end: 20121031
  2. SYNAGIS [Suspect]
     Indication: PREMATURE BABY
     Route: 030
     Dates: start: 20121204

REACTIONS (4)
  - Bronchiolitis [Recovered/Resolved]
  - Lower respiratory tract infection [Recovered/Resolved]
  - Ear infection [Recovered/Resolved]
  - Tonsillitis [Recovered/Resolved]
